FAERS Safety Report 14915710 (Version 3)
Quarter: 2018Q2

REPORT INFORMATION
  Report Type: Spontaneous
  Country: GB (occurrence: GB)
  Receive Date: 20180518
  Receipt Date: 20180522
  Transmission Date: 20180711
  Serious: Yes (Death, Hospitalization)
  Sender: FDA-Public Use
  Company Number: GB-BAUSCH-BL-2018-014260

PATIENT
  Age: 46 Year
  Sex: Female

DRUGS (9)
  1. HYOSCINE HYDROBROMIDE [Suspect]
     Active Substance: SCOPOLAMINE
     Indication: SALIVARY HYPERSECRETION
     Dosage: 900 UG, QD (300 MICROGRAM AM AND 600 MICROGRAM PM)
     Route: 048
  2. NORETHISTERONE [Suspect]
     Active Substance: NORETHINDRONE
     Indication: PRODUCT USED FOR UNKNOWN INDICATION
     Dosage: 10 MG, QD (5 MG AM AND 5 MG PM)
     Route: 048
  3. LEVOTHYROXINE. [Suspect]
     Active Substance: LEVOTHYROXINE
     Indication: HYPOTHYROIDISM
     Dosage: 75 MICOGRAM
     Route: 048
  4. TOLTERODINE [Suspect]
     Active Substance: TOLTERODINE
     Indication: URINARY INCONTINENCE
     Dosage: 4 MG, QD (2 AM AND 2 PM)
     Route: 048
  5. SALBUTAMOL [Suspect]
     Active Substance: ALBUTEROL
     Indication: PRODUCT USED FOR UNKNOWN INDICATION
     Dosage: 100 MICROGRAM AS NEEDED
     Route: 065
  6. CLOZARIL [Suspect]
     Active Substance: CLOZAPINE
     Indication: SCHIZOPHRENIA
     Dosage: 375 MG, QD (150 MG AM AND 225 MG PM)
     Route: 048
     Dates: start: 20140318, end: 201804
  7. VALPROIC ACID. [Suspect]
     Active Substance: VALPROIC ACID
     Indication: AFFECTIVE DISORDER
     Dosage: 2 G, QD (1 G AM AND 1 G PM)
     Route: 048
  8. WARFARIN [Suspect]
     Active Substance: WARFARIN
     Indication: DEEP VEIN THROMBOSIS
     Route: 048
  9. SERTRALINE [Suspect]
     Active Substance: SERTRALINE HYDROCHLORIDE
     Indication: DEPRESSION
     Dosage: 100 MG, QD
     Route: 048

REACTIONS (1)
  - Pneumonia [Fatal]

NARRATIVE: CASE EVENT DATE: 20180415
